FAERS Safety Report 20226970 (Version 1)
Quarter: 2021Q4

REPORT INFORMATION
  Report Type: Spontaneous
  Country: US (occurrence: US)
  Receive Date: 20211224
  Receipt Date: 20211224
  Transmission Date: 20220303
  Serious: Yes (Hospitalization, Other)
  Sender: FDA-Public Use
  Company Number: US-BION-010220

PATIENT
  Age: 56 Year
  Sex: Female
  Weight: 144 kg

DRUGS (2)
  1. APIXABAN [Suspect]
     Active Substance: APIXABAN
     Indication: Anticoagulant therapy
     Dosage: 5 MG TWICE DAILY
     Route: 048
  2. ASPIRIN [Concomitant]
     Active Substance: ASPIRIN

REACTIONS (3)
  - Upper gastrointestinal haemorrhage [Recovered/Resolved]
  - Thrombosis in device [Recovered/Resolved]
  - Gastric disorder [Recovered/Resolved]
